FAERS Safety Report 15570110 (Version 5)
Quarter: 2019Q2

REPORT INFORMATION
  Report Type: Spontaneous
  Country: FI (occurrence: FI)
  Receive Date: 20181031
  Receipt Date: 20190625
  Transmission Date: 20190711
  Serious: Yes (Death, Hospitalization, Other)
  Sender: FDA-Public Use
  Company Number: FI-AUROBINDO-AUR-APL-2018-052672

PATIENT

DRUGS (9)
  1. LEPONEX [Suspect]
     Active Substance: CLOZAPINE
     Dosage: 75 MILLIGRAM, ONCE A DAY, (THIRD TRIMESTER EXPOSURE)
     Route: 065
     Dates: start: 201807, end: 201807
  2. VENLAFAXINE [Concomitant]
     Active Substance: VENLAFAXINE HYDROCHLORIDE
     Indication: PRODUCT USED FOR UNKNOWN INDICATION
     Dosage: 2 DOSAGE FORM, ONCE A DAY
     Route: 065
  3. OPAMOX [Concomitant]
     Active Substance: OXAZEPAM
     Indication: PRODUCT USED FOR UNKNOWN INDICATION
     Dosage: 15 MILLIGRAM
     Route: 065
  4. VENLAFAXINE [Concomitant]
     Active Substance: VENLAFAXINE HYDROCHLORIDE
     Dosage: 4 DOSAGE FORM, DAILY, (2 DF, BID)
     Route: 065
  5. OLANZAPINE. [Suspect]
     Active Substance: OLANZAPINE
     Indication: PRODUCT USED FOR UNKNOWN INDICATION
     Dosage: UNK
     Route: 065
     Dates: start: 201807, end: 201807
  6. LEPONEX [Suspect]
     Active Substance: CLOZAPINE
     Indication: SCHIZOAFFECTIVE DISORDER
     Dosage: 1 DF (300-375 MG), QD (10 YEARS AGO)
     Route: 065
  7. LEPONEX [Suspect]
     Active Substance: CLOZAPINE
     Dosage: 375 MILLIGRAM, ONCE A DAY, (THIRD TRIMESTER EXPOSURE)
     Route: 065
  8. LEPONEX [Suspect]
     Active Substance: CLOZAPINE
     Dosage: 1 DOSAGE FORM, ONCE A DAY, (THIRD TRIMESTER EXPOSURE)
     Route: 065
     Dates: start: 20180711
  9. PERATSIN [Concomitant]
     Active Substance: PERPHENAZINE
     Indication: PRODUCT USED FOR UNKNOWN INDICATION
     Dosage: 4 DOSAGE FORM, DAILY (2 DF, BID)
     Route: 065

REACTIONS (12)
  - Cardiac function disturbance postoperative [Fatal]
  - Caesarean section [Unknown]
  - Suicidal behaviour [Unknown]
  - Insomnia [Unknown]
  - Anxiety [Unknown]
  - Maternal exposure during pregnancy [Recovered/Resolved]
  - Cardiac failure acute [Fatal]
  - Congestive cardiomyopathy [Fatal]
  - Mental impairment [Unknown]
  - Cardiogenic shock [Fatal]
  - Off label use [Recovered/Resolved]
  - Therapeutic product effect incomplete [Unknown]

NARRATIVE: CASE EVENT DATE: 201807
